FAERS Safety Report 6961754-3 (Version None)
Quarter: 2010Q3

REPORT INFORMATION
  Report Type: 
  Country: None (occurrence: None)
  Receive Date: 20100901
  Receipt Date: 20100827
  Transmission Date: 20110219
  Serious: Yes (Other)
  Sender: FDA-Public Use
  Company Number: US-ABBOTT-10P-163-0664373-00

PATIENT
  Sex: Female
  Weight: 62.198 kg

DRUGS (3)
  1. HUMIRA [Suspect]
     Indication: PSORIASIS
     Dosage: 2- 40MG PENS
     Route: 058
     Dates: start: 20100101
  2. HUMIRA [Suspect]
     Indication: PSORIATIC ARTHROPATHY
     Route: 058
     Dates: start: 20080801, end: 20090901
  3. HUMIRA [Suspect]
     Route: 058
     Dates: start: 20100101

REACTIONS (3)
  - ABDOMINAL ADHESIONS [None]
  - ABDOMINAL PAIN [None]
  - VOMITING [None]
